FAERS Safety Report 10142974 (Version 1)
Quarter: 2014Q2

REPORT INFORMATION
  Report Type: Spontaneous
  Country: GB (occurrence: None)
  Receive Date: 20140428
  Receipt Date: 20140428
  Transmission Date: 20141212
  Serious: Yes (Hospitalization)
  Sender: FDA-Public Use
  Company Number: AUR-APL-2014-04871

PATIENT
  Age: 61 Year
  Sex: Female
  Weight: 53.97 kg

DRUGS (6)
  1. ALENDRONIC ACID (ALENDRONIC ACID) [Suspect]
     Indication: OSTEOPOROSIS
     Route: 048
     Dates: start: 2006, end: 201402
  2. ADCAL-D3 (LEKOVITCA) [Concomitant]
  3. CO-CODAMOL (PANADEINE CO) [Suspect]
  4. METHOTREXATE (METHOTREXATE) [Concomitant]
  5. NAPROXEN (NAPROXEN) [Concomitant]
  6. OMEPRAZOLE (OMEPRAZOLE) [Concomitant]

REACTIONS (2)
  - Hip fracture [None]
  - Atypical femur fracture [None]
